FAERS Safety Report 7944500-6 (Version None)
Quarter: 2011Q4

REPORT INFORMATION
  Report Type: 
  Country: None (occurrence: None)
  Receive Date: 20111129
  Receipt Date: 20111116
  Transmission Date: 20120403
  Serious: Yes (Death)
  Sender: FDA-Public Use
  Company Number: CA-RANBAXY-2010US-39561

PATIENT
  Age: 8 Month
  Sex: Female

DRUGS (12)
  1. RITONAVIR [Suspect]
     Indication: ANTIRETROVIRAL THERAPY
     Dosage: UNK, UNK
     Route: 065
  2. ISONIAZID [Suspect]
     Indication: TUBERCULOSIS
     Dosage: UNK, UNK
     Route: 065
  3. RIFAMPICIN [Suspect]
     Indication: TUBERCULOSIS
     Dosage: UNK, UNK
     Route: 065
  4. PYRAZINAMIDE [Suspect]
     Indication: TUBERCULOSIS
     Dosage: UNK, UNK
     Route: 065
  5. ZIDOVUDINE [Suspect]
     Indication: ANTIRETROVIRAL THERAPY
     Dosage: UNK, UNK
     Route: 065
  6. COTRIM [Suspect]
     Indication: TUBERCULOSIS
     Dosage: UNK, UNK
     Route: 065
  7. AMIKACIN [Suspect]
     Indication: TUBERCULOSIS
     Dosage: UNK, UNK
     Route: 065
  8. LAMIVUDINE(PEPFAR) [Suspect]
     Indication: ANTIRETROVIRAL THERAPY
     Dosage: UNK, UNK
     Route: 065
  9. CIPROFLOXACIN [Suspect]
     Indication: TUBERCULOSIS
     Dosage: UNK, UNK
     Route: 065
  10. LOPINAVIR/RITONAVIR [Suspect]
     Indication: ANTIRETROVIRAL THERAPY
     Dosage: UNK, UNK
     Route: 065
  11. TICE BCG [Suspect]
     Indication: PRODUCT USED FOR UNKNOWN INDICATION
     Dosage: UNK, UNK
     Route: 065
  12. ETHAMBUTOL HYDROCHLORIDE [Suspect]
     Indication: TUBERCULOSIS
     Dosage: UNK, UNK
     Route: 065

REACTIONS (3)
  - BOVINE TUBERCULOSIS [None]
  - HEPATOTOXICITY [None]
  - IMMUNE RECONSTITUTION SYNDROME [None]
